FAERS Safety Report 18701365 (Version 1)
Quarter: 2021Q1

REPORT INFORMATION
  Report Type: Spontaneous
  Country: US (occurrence: US)
  Receive Date: 20210105
  Receipt Date: 20210105
  Transmission Date: 20210419
  Serious: Yes (Hospitalization, Other)
  Sender: FDA-Public Use
  Company Number: US-SA-2020SA376867

PATIENT

DRUGS (2)
  1. TOUJEO [Suspect]
     Active Substance: INSULIN GLARGINE
     Dosage: 300 IU, QD (MORNING)
     Dates: start: 2014
  2. APIDRA [Suspect]
     Active Substance: INSULIN GLULISINE
     Indication: TYPE 1 DIABETES MELLITUS
     Dosage: 35 IU, TID
     Dates: start: 2014

REACTIONS (18)
  - Condition aggravated [Recovered/Resolved]
  - Injection site swelling [Not Recovered/Not Resolved]
  - Urticaria [Not Recovered/Not Resolved]
  - Hypoacusis [Unknown]
  - Blood pressure decreased [Unknown]
  - Vomiting [Unknown]
  - Poor quality sleep [Unknown]
  - Pruritus [Recovered/Resolved]
  - Injection site erythema [Recovered/Resolved]
  - Speech disorder [Unknown]
  - Hypersensitivity [Recovered/Resolved]
  - Loss of consciousness [Unknown]
  - Muscular dystrophy [Unknown]
  - Asthenia [Unknown]
  - Rash [Recovered/Resolved]
  - Swelling [Recovered/Resolved]
  - Condition aggravated [Unknown]
  - Injection site rash [Recovered/Resolved]

NARRATIVE: CASE EVENT DATE: 202012
